FAERS Safety Report 5642892-4 (Version None)
Quarter: 2008Q1

REPORT INFORMATION
  Report Type: 
  Country: None (occurrence: None)
  Receive Date: 20080228
  Receipt Date: 20080221
  Transmission Date: 20080703
  Serious: Yes (Hospitalization)
  Sender: FDA-Public Use
  Company Number: US-JNJFOC-20080205415

PATIENT
  Sex: Female
  Weight: 42.64 kg

DRUGS (7)
  1. FENTANYL TRANSDERMAL SYSTEM [Suspect]
     Indication: PAIN
     Route: 062
  2. NEURONTIN [Suspect]
     Indication: DRUG USE FOR UNKNOWN INDICATION
     Route: 048
  3. METFORMIN HCL [Concomitant]
     Indication: DRUG USE FOR UNKNOWN INDICATION
     Route: 048
  4. LORTAB [Concomitant]
     Indication: DRUG USE FOR UNKNOWN INDICATION
     Route: 048
  5. CELEBREX [Concomitant]
     Indication: DRUG USE FOR UNKNOWN INDICATION
     Route: 048
  6. DIAZOXIDE [Concomitant]
     Indication: DIABETES MELLITUS
     Route: 048
  7. PAXIL [Concomitant]
     Indication: DRUG USE FOR UNKNOWN INDICATION
     Route: 048

REACTIONS (8)
  - ABNORMAL BEHAVIOUR [None]
  - DIET REFUSAL [None]
  - GASTROENTERITIS VIRAL [None]
  - HYPERSOMNIA [None]
  - OVERDOSE [None]
  - SOMNOLENCE [None]
  - THERAPY CESSATION [None]
  - URINARY TRACT INFECTION [None]
